FAERS Safety Report 13125835 (Version 1)
Quarter: 2017Q1

REPORT INFORMATION
  Report Type: Spontaneous
  Country: US (occurrence: US)
  Receive Date: 20170117
  Receipt Date: 20170117
  Transmission Date: 20170428
  Serious: Yes (Life-Threatening, Hospitalization, Other)
  Sender: FDA-Public Use
  Company Number: None

PATIENT
  Age: 72 Year
  Sex: Male
  Weight: 73.8 kg

DRUGS (1)
  1. ATEZOLIZUMAB [Suspect]
     Active Substance: ATEZOLIZUMAB

REACTIONS (12)
  - Orthopnoea [None]
  - Oedema peripheral [None]
  - Dyspnoea exertional [None]
  - Acute respiratory distress syndrome [None]
  - Infection [None]
  - Computerised tomogram abnormal [None]
  - Lung infiltration [None]
  - Bronchiectasis [None]
  - Collagen-vascular disease [None]
  - Scar [None]
  - Interstitial lung disease [None]
  - Computerised tomogram thorax abnormal [None]

NARRATIVE: CASE EVENT DATE: 20170102
